FAERS Safety Report 24531652 (Version 1)
Quarter: 2024Q4

REPORT INFORMATION
  Report Type: Spontaneous
  Country: GR (occurrence: GR)
  Receive Date: 20241022
  Receipt Date: 20241022
  Transmission Date: 20250114
  Serious: Yes (Hospitalization, Other)
  Sender: IPCA
  Company Number: GR-IPCA LABORATORIES LIMITED-IPC-2024-GR-002512

PATIENT

DRUGS (9)
  1. GABAPENTIN [Suspect]
     Active Substance: GABAPENTIN
     Indication: Prophylaxis
     Dosage: 300 MILLIGRAM, QD
     Route: 065
  2. GABAPENTIN [Suspect]
     Active Substance: GABAPENTIN
     Dosage: 300 MILLIGRAM, BID
     Route: 065
  3. GABAPENTIN [Suspect]
     Active Substance: GABAPENTIN
     Dosage: 300 MILLIGRAM, TID
     Route: 065
  4. VANCOMYCIN [Concomitant]
     Active Substance: VANCOMYCIN
     Indication: Prophylactic chemotherapy
     Dosage: 500 MILLIGRAM, QID
     Route: 042
  5. VANCOMYCIN [Concomitant]
     Active Substance: VANCOMYCIN
     Dosage: 550 MILLIGRAM, QID
     Route: 042
  6. VANCOMYCIN [Concomitant]
     Active Substance: VANCOMYCIN
     Dosage: 1 GRAM, QID
     Route: 065
  7. CEFEPIME [Concomitant]
     Active Substance: CEFEPIME HYDROCHLORIDE
     Indication: Prophylactic chemotherapy
     Dosage: 2 GRAM, TID
     Route: 065
  8. RIFAMPIN [Concomitant]
     Active Substance: RIFAMPIN
     Indication: Prophylactic chemotherapy
     Dosage: 600 MILLIGRAM, QD
     Route: 065
  9. UNSPECIFIED INGREDIENT [Concomitant]
     Active Substance: UNSPECIFIED INGREDIENT
     Indication: Anticoagulant therapy
     Dosage: UNK
     Route: 065

REACTIONS (3)
  - Adrenal insufficiency [Unknown]
  - Glucocorticoid deficiency [Unknown]
  - Staphylococcal infection [Unknown]
